FAERS Safety Report 4461219-7 (Version None)
Quarter: 2004Q3

REPORT INFORMATION
  Report Type: 
  Country: None (occurrence: None)
  Receive Date: 20040928
  Receipt Date: 20040920
  Transmission Date: 20050211
  Serious: Yes (Death, Hospitalization)
  Sender: FDA-Public Use
  Company Number: US-JNJFOC-20040808296

PATIENT
  Sex: Male

DRUGS (1)
  1. DURAGESIC [Suspect]
     Route: 065
     Dates: start: 20040201

REACTIONS (4)
  - DRUG ABUSER [None]
  - INTENTIONAL MISUSE [None]
  - MEDICATION ERROR [None]
  - OVERDOSE [None]
